FAERS Safety Report 5450250-0 (Version None)
Quarter: 2007Q3

REPORT INFORMATION
  Report Type: 
  Country: None (occurrence: None)
  Receive Date: 20070912
  Receipt Date: 20070831
  Transmission Date: 20080115
  Serious: Yes (Other)
  Sender: FDA-Public Use
  Company Number: US-PFIZER INC-2007073648

PATIENT
  Sex: Female

DRUGS (1)
  1. EXUBERA [Suspect]

REACTIONS (2)
  - HYPERHIDROSIS [None]
  - WEIGHT INCREASED [None]
